FAERS Safety Report 5370592-7 (Version None)
Quarter: 2007Q2

REPORT INFORMATION
  Report Type: 
  Country: None (occurrence: None)
  Receive Date: 20070622
  Receipt Date: 20070607
  Transmission Date: 20071010
  Serious: Yes (Hospitalization)
  Sender: FDA-Public Use
  Company Number: SPV1-2007-03333

PATIENT
  Age: 46 Year
  Sex: Female

DRUGS (3)
  1. PENTASA [Suspect]
     Indication: COLITIS ULCERATIVE
     Dosage: ORAL
     Route: 048
     Dates: start: 20070520, end: 20070529
  2. PANTOPRAZOLE SODIUM [Concomitant]
  3. KETOROLAC TROMETHAMINE [Concomitant]

REACTIONS (6)
  - DEVICE MIGRATION [None]
  - EROSIVE DUODENITIS [None]
  - GASTRIC ULCER [None]
  - GASTRITIS EROSIVE [None]
  - GASTRODUODENITIS [None]
  - VOMITING [None]
